FAERS Safety Report 23723234 (Version 1)
Quarter: 2024Q2

REPORT INFORMATION
  Report Type: Report from Study
  Country: IN (occurrence: IN)
  Receive Date: 20240409
  Receipt Date: 20240409
  Transmission Date: 20240716
  Serious: Yes (Other)
  Sender: FDA-Public Use
  Company Number: IN-002147023-NVSC2024IN069021

PATIENT

DRUGS (2)
  1. RUXOLITINIB [Suspect]
     Active Substance: RUXOLITINIB
     Indication: Myeloproliferative neoplasm
     Dosage: 5 MG, BID (DISCONTINUED)
     Route: 048
     Dates: start: 20231122
  2. RUXOLITINIB [Suspect]
     Active Substance: RUXOLITINIB
     Indication: Janus kinase 2 mutation
     Dosage: 5 MG, QD (RESTARTED AT DECREASED DOSE)
     Route: 048
     Dates: start: 20240314

REACTIONS (2)
  - Haemoglobin decreased [Unknown]
  - White blood cell count decreased [Unknown]
